FAERS Safety Report 6523677-3 (Version None)
Quarter: 2009Q4

REPORT INFORMATION
  Report Type: 
  Country: None (occurrence: None)
  Receive Date: 20091222
  Receipt Date: 20091215
  Transmission Date: 20100525
  Serious: Yes (Other)
  Sender: FDA-Public Use
  Company Number: SPV1-2009-02486

PATIENT
  Age: 53 Year
  Sex: Female

DRUGS (1)
  1. FOSRENOL [Suspect]
     Indication: HYPERPHOSPHATAEMIA
     Dates: start: 20070101, end: 20090101

REACTIONS (1)
  - GASTRIC ADENOMA [None]
